FAERS Safety Report 7085520-6 (Version None)
Quarter: 2010Q4

REPORT INFORMATION
  Report Type: 
  Country: None (occurrence: None)
  Receive Date: 20101105
  Receipt Date: 20101101
  Transmission Date: 20110411
  Serious: Yes (Disabling, Other)
  Sender: FDA-Public Use
  Company Number: AU-PFIZER INC-2010120518

PATIENT
  Age: 55 Year
  Sex: Female
  Weight: 80 kg

DRUGS (4)
  1. REVATIO [Suspect]
     Indication: PULMONARY ARTERIAL HYPERTENSION
     Dosage: 20 MG, 3X/DAY
     Route: 048
     Dates: start: 20100511, end: 20101021
  2. LASIX [Concomitant]
     Dosage: 40 MG, 1X/DAY
     Route: 048
  3. SLOW-K [Concomitant]
     Dosage: 2 (UNIT UNSPECIFIED), 1X/DAY
     Route: 048
  4. WARFARIN [Concomitant]
     Indication: PULMONARY EMBOLISM
     Dosage: VARIABLE, INR 2-3

REACTIONS (2)
  - ABASIA [None]
  - PARAESTHESIA [None]
